FAERS Safety Report 9220031 (Version 2)
Quarter: 2014Q1

REPORT INFORMATION
  Report Type: Report from Study
  Country: CA (occurrence: CA)
  Receive Date: 20130409
  Receipt Date: 20140324
  Transmission Date: 20141002
  Serious: Yes (Other)
  Sender: FDA-Public Use
  Company Number: CA-ROCHE-1210810

PATIENT
  Age: 41 Year
  Sex: Female

DRUGS (14)
  1. RITUXAN [Suspect]
     Indication: BEHCET^S SYNDROME
     Route: 042
     Dates: start: 20121015, end: 20121029
  2. RITUXAN [Suspect]
     Indication: VASCULITIS
  3. ACTEMRA [Suspect]
     Indication: BEHCET^S SYNDROME
     Route: 042
     Dates: start: 20131017, end: 20131114
  4. ACTEMRA [Suspect]
     Indication: VASCULITIS
  5. MYFORTIC [Concomitant]
  6. IMURAN [Concomitant]
  7. CIPRALEX [Concomitant]
  8. OXAZEPAM [Concomitant]
  9. PROBACLAC (BIFIDOBACTERIUM/LACTOBACILLUS) [Concomitant]
  10. LOSEC [Concomitant]
  11. DIPHENHYDRAMINE HCL [Concomitant]
     Indication: PREMEDICATION
     Route: 048
     Dates: start: 20121015, end: 20121029
  12. ACETAMINOPHEN [Concomitant]
     Indication: PREMEDICATION
     Route: 048
     Dates: start: 20121015, end: 20121029
  13. METHYLPREDNISOLONE [Concomitant]
     Indication: PREMEDICATION
     Route: 042
     Dates: start: 20121015, end: 20121029
  14. REMICADE [Concomitant]

REACTIONS (5)
  - Rheumatoid arthritis [Unknown]
  - Drug ineffective [Unknown]
  - Skin lesion [Unknown]
  - Treatment failure [Unknown]
  - Off label use [Unknown]
